FAERS Safety Report 19909164 (Version 1)
Quarter: 2021Q4

REPORT INFORMATION
  Report Type: Spontaneous
  Country: US (occurrence: US)
  Receive Date: 20211001
  Receipt Date: 20211001
  Transmission Date: 20220303
  Serious: No
  Sender: FDA-Public Use
  Company Number: US-AMARIN PHARMA, INC.-2021AMR000228

PATIENT
  Age: 64 Year
  Sex: Female
  Weight: 64.47 kg

DRUGS (6)
  1. VASCEPA [Suspect]
     Active Substance: ICOSAPENT ETHYL
     Indication: Low density lipoprotein increased
     Route: 048
     Dates: start: 20201216, end: 2021
  2. VASCEPA [Suspect]
     Active Substance: ICOSAPENT ETHYL
     Route: 048
     Dates: start: 20210322, end: 20210323
  3. ROSUVASTATIN [Concomitant]
     Active Substance: ROSUVASTATIN
     Indication: Product used for unknown indication
     Route: 048
     Dates: start: 20201216, end: 2021
  4. CARVEDILOL [Concomitant]
     Active Substance: CARVEDILOL
     Indication: Hypertension
     Route: 048
     Dates: start: 202012
  5. ESTRADIOL [Concomitant]
     Active Substance: ESTRADIOL
     Indication: Hot flush
     Route: 062
     Dates: start: 2006
  6. ESTRADIOL [Concomitant]
     Active Substance: ESTRADIOL
     Indication: Menopausal symptoms

REACTIONS (7)
  - Aspartate aminotransferase increased [Unknown]
  - Swelling face [Recovered/Resolved]
  - Urine output decreased [Recovered/Resolved]
  - Rash macular [Recovered/Resolved]
  - Peripheral swelling [Recovered/Resolved]
  - Intentional underdose [Recovered/Resolved]
  - Off label use [Recovered/Resolved]

NARRATIVE: CASE EVENT DATE: 20210201
